FAERS Safety Report 20430423 (Version 1)
Quarter: 2022Q1

REPORT INFORMATION
  Report Type: Report from Study
  Country: NL (occurrence: NL)
  Receive Date: 20220204
  Receipt Date: 20220204
  Transmission Date: 20220423
  Serious: Yes (Life-Threatening, Hospitalization)
  Sender: FDA-Public Use
  Company Number: NL-SERVIER-S20007672

PATIENT

DRUGS (10)
  1. PEGASPARGASE [Suspect]
     Active Substance: PEGASPARGASE
     Indication: Acute lymphocytic leukaemia
     Dosage: 1900 IU
     Route: 042
     Dates: start: 20200615, end: 20200629
  2. METHOTREXATE SODIUM [Suspect]
     Active Substance: METHOTREXATE SODIUM
     Indication: Acute lymphocytic leukaemia
     Dosage: 15 MG
     Route: 037
     Dates: start: 20200615, end: 20200724
  3. BLINATUMOMAB [Suspect]
     Active Substance: BLINATUMOMAB
     Indication: Acute lymphocytic leukaemia
     Dosage: 28 ?G
     Route: 065
     Dates: start: 20200424, end: 20200521
  4. TN UNSPECIFIED [Concomitant]
     Indication: Acute lymphocytic leukaemia
     Dosage: 4 MG
     Route: 037
     Dates: start: 20200615, end: 20200724
  5. TN UNSPECIFIED [Concomitant]
     Dosage: 10 MG
     Route: 048
     Dates: start: 20200611, end: 20200724
  6. TN UNSPECIFIED [Concomitant]
     Indication: Acute lymphocytic leukaemia
     Dosage: 120 MG
     Route: 065
     Dates: start: 20200723, end: 20200805
  7. TN UNSPECIFIED [Concomitant]
     Indication: Acute lymphocytic leukaemia
     Dosage: 290 MG
     Route: 065
     Dates: start: 20200724, end: 20200730
  8. TN UNSPECIFIED [Concomitant]
     Indication: Acute lymphocytic leukaemia
     Dosage: 120 MG
     Route: 065
     Dates: start: 20200724, end: 20200731
  9. TN UNSPECIFIED [Concomitant]
     Indication: Acute lymphocytic leukaemia
     Dosage: 700 MG
     Route: 065
     Dates: start: 20200724, end: 20200730
  10. TN UNSPECIFIED [Concomitant]
     Indication: Acute lymphocytic leukaemia
     Dosage: 10 MG
     Route: 065
     Dates: start: 20200611, end: 20200625

REACTIONS (1)
  - Encephalopathy [Recovered/Resolved]

NARRATIVE: CASE EVENT DATE: 20200806
